FAERS Safety Report 11486904 (Version 1)
Quarter: 2015Q3

REPORT INFORMATION
  Report Type: Spontaneous
  Country: US (occurrence: US)
  Receive Date: 20150910
  Receipt Date: 20150910
  Transmission Date: 20151125
  Serious: No
  Sender: FDA-Public Use
  Company Number: US-PFIZER INC-2015293724

PATIENT
  Age: 69 Year
  Sex: Female

DRUGS (8)
  1. CIPRO [Suspect]
     Active Substance: CIPROFLOXACIN HYDROCHLORIDE
     Dosage: UNK
  2. NEOMYCIN SULFATE. [Suspect]
     Active Substance: NEOMYCIN SULFATE
     Dosage: UNK
  3. CEPHALEXINE [Suspect]
     Active Substance: CEPHALEXIN
     Dosage: UNK
  4. NEURONTIN [Suspect]
     Active Substance: GABAPENTIN
     Dosage: UNK
  5. KEFLEX [Suspect]
     Active Substance: CEPHALEXIN
     Dosage: UNK
  6. VESICARE [Suspect]
     Active Substance: SOLIFENACIN SUCCINATE
     Dosage: UNK
  7. LYRICA [Suspect]
     Active Substance: PREGABALIN
     Dosage: UNK
  8. NEOSPORIN AF [Suspect]
     Active Substance: MICONAZOLE NITRATE
     Dosage: UNK

REACTIONS (1)
  - Drug hypersensitivity [Unknown]
